FAERS Safety Report 12365721 (Version 1)
Quarter: 2016Q2

REPORT INFORMATION
  Report Type: Report from Study
  Country: US (occurrence: US)
  Receive Date: 20160513
  Receipt Date: 20160513
  Transmission Date: 20160815
  Serious: Yes (Other)
  Sender: FDA-Public Use
  Company Number: US-AMGEN-USASL2016058491

PATIENT
  Age: 56 Year
  Sex: Female

DRUGS (1)
  1. PROLIA [Suspect]
     Active Substance: DENOSUMAB
     Indication: OSTEOPOROSIS
     Dosage: UNK
     Route: 065
     Dates: start: 2015

REACTIONS (11)
  - Excessive granulation tissue [Unknown]
  - Blood alkaline phosphatase increased [Unknown]
  - Seizure [Unknown]
  - Bone density abnormal [Unknown]
  - Pain [Recovered/Resolved]
  - Tooth disorder [Unknown]
  - Tooth fracture [Unknown]
  - Gingival recession [Unknown]
  - Squamous cell carcinoma [Unknown]
  - Pseudocyst [Recovered/Resolved]
  - Weight increased [Unknown]

NARRATIVE: CASE EVENT DATE: 2015
